FAERS Safety Report 6480140-6 (Version None)
Quarter: 2009Q4

REPORT INFORMATION
  Report Type: 
  Country: None (occurrence: None)
  Receive Date: 20091208
  Receipt Date: 20091203
  Transmission Date: 20100525
  Serious: Yes (Life-Threatening)
  Sender: FDA-Public Use
  Company Number: IT-BAYER-200941569GPV

PATIENT
  Age: 51 Year
  Sex: Male

DRUGS (2)
  1. NEXAVAR [Suspect]
     Indication: HEPATIC NEOPLASM MALIGNANT
     Dosage: TOTAL DAILY DOSE: 800 MG
     Route: 048
     Dates: start: 20090914, end: 20091012
  2. ENALAPRIL PENSA [Concomitant]
     Route: 048
     Dates: start: 20090101, end: 20091022

REACTIONS (2)
  - HEPATIC FUNCTION ABNORMAL [None]
  - HEPATIC INFARCTION [None]
